FAERS Safety Report 9360023 (Version 1)
Quarter: 2013Q2

REPORT INFORMATION
  Report Type: Report from Study
  Country: US (occurrence: US)
  Receive Date: 20130621
  Receipt Date: 20130621
  Transmission Date: 20140414
  Serious: Yes (Other)
  Sender: FDA-Public Use
  Company Number: PHEH2013US013298

PATIENT
  Age: 14 Year
  Sex: Female

DRUGS (2)
  1. TOBI [Suspect]
     Indication: CYSTIC FIBROSIS
     Dosage: 1 DF, Q12H
     Dates: start: 200903
  2. PULMOZYME [Concomitant]
     Dosage: 2.5 MG, DAILY

REACTIONS (2)
  - Dyspnoea [Unknown]
  - Pseudomonas infection [Unknown]
